FAERS Safety Report 9548572 (Version 1)
Quarter: 2013Q3

REPORT INFORMATION
  Report Type: Spontaneous
  Country: US (occurrence: US)
  Receive Date: 20130924
  Receipt Date: 20130924
  Transmission Date: 20140515
  Serious: No
  Sender: FDA-Public Use
  Company Number: US-PFIZER INC-2013271626

PATIENT
  Sex: Female

DRUGS (8)
  1. LIPITOR [Suspect]
     Dosage: UNK
  2. ZITHROMAX [Suspect]
     Dosage: UNK
  3. REGULAR ASPIRIN [Suspect]
     Dosage: UNK
  4. VIOXX [Suspect]
     Dosage: UNK
  5. CEFTIN [Suspect]
     Dosage: UNK
  6. FOSAMAX [Suspect]
     Dosage: UNK
  7. NAPROXEN [Suspect]
     Dosage: UNK
  8. TYLENOL WITH CODEINE [Suspect]
     Dosage: UNK

REACTIONS (1)
  - Drug hypersensitivity [Unknown]
